FAERS Safety Report 20317608 (Version 1)
Quarter: 2022Q1

REPORT INFORMATION
  Report Type: Spontaneous
  Country: US (occurrence: US)
  Receive Date: 20220110
  Receipt Date: 20220110
  Transmission Date: 20220424
  Serious: No
  Sender: FDA-Public Use
  Company Number: US-IPSEN Group, Research and Development-2022-00347

PATIENT

DRUGS (2)
  1. ONIVYDE [Suspect]
     Active Substance: IRINOTECAN HYDROCHLORIDE
     Indication: Pancreatic carcinoma
     Dosage: 70 MG/M2
     Route: 065
  2. ONIVYDE [Suspect]
     Active Substance: IRINOTECAN HYDROCHLORIDE
     Dosage: 30 MG/M2
     Route: 065

REACTIONS (1)
  - Blood bilirubin increased [Unknown]
